FAERS Safety Report 4644001-7 (Version None)
Quarter: 2005Q1

REPORT INFORMATION
  Report Type: 
  Country: None (occurrence: None)
  Receive Date: 20050331
  Receipt Date: 20050208
  Transmission Date: 20050727
  Serious: No
  Sender: FDA-Public Use
  Company Number: 04P-163-0283677-00

PATIENT
  Age: 81 Year
  Sex: Male

DRUGS (7)
  1. HUMIRA [Suspect]
     Indication: RHEUMATOID ARTHRITIS
     Dosage: 40 MG, 1 IN 2 WK, SUBCUTANEOUS
     Route: 058
     Dates: start: 20031210, end: 20041001
  2. PREDNISONE [Concomitant]
  3. HYDROXYCHLOROQUINE PHOSPHATE [Concomitant]
  4. ULTRACET [Concomitant]
  5. FAMOTIDINE [Concomitant]
  6. RAMIPRIL [Concomitant]
  7. FOLIC ACID [Concomitant]

REACTIONS (1)
  - CARDIAC FAILURE CONGESTIVE [None]
